FAERS Safety Report 6006884-8 (Version None)
Quarter: 2008Q4

REPORT INFORMATION
  Report Type: 
  Country: None (occurrence: None)
  Receive Date: 20081217
  Receipt Date: 20071114
  Transmission Date: 20090506
  Serious: No
  Sender: FDA-Public Use
  Company Number: US-ASTRAZENECA-2007UW26504

PATIENT
  Age: 54 Year
  Sex: Female
  Weight: 96.6 kg

DRUGS (5)
  1. CRESTOR [Suspect]
     Indication: BLOOD CHOLESTEROL INCREASED
     Route: 048
     Dates: start: 20070801
  2. CRESTOR [Suspect]
     Route: 048
     Dates: start: 20071001
  3. NEXIUM [Concomitant]
     Route: 048
  4. HYDROCHLOROTHIAZIDE [Concomitant]
  5. GLUCOPHAGE [Concomitant]

REACTIONS (3)
  - AMENORRHOEA [None]
  - DIZZINESS [None]
  - MUSCLE SPASMS [None]
